FAERS Safety Report 12041748 (Version 1)
Quarter: 2016Q1

REPORT INFORMATION
  Report Type: Spontaneous
  Country: US (occurrence: US)
  Receive Date: 20160208
  Receipt Date: 20160208
  Transmission Date: 20160526
  Serious: No
  Sender: FDA-Public Use
  Company Number: US-BIOGEN-2016BI00178707

PATIENT
  Sex: Female

DRUGS (1)
  1. AVONEX [Suspect]
     Active Substance: INTERFERON BETA-1A
     Indication: MULTIPLE SCLEROSIS
     Route: 030
     Dates: start: 20090223, end: 20120702

REACTIONS (6)
  - Feeling hot [Recovered/Resolved]
  - Overdose [Recovered/Resolved]
  - Influenza like illness [Recovered/Resolved]
  - Headache [Recovered/Resolved]
  - Gastric disorder [Recovered/Resolved]
  - Drug ineffective [Recovered/Resolved]
